FAERS Safety Report 16175225 (Version 1)
Quarter: 2019Q2

REPORT INFORMATION
  Report Type: Spontaneous
  Country: US (occurrence: US)
  Receive Date: 20190409
  Receipt Date: 20190409
  Transmission Date: 20190711
  Serious: No
  Sender: FDA-Public Use
  Company Number: US-PERRIGO-19US000400

PATIENT
  Age: 48 Year
  Sex: Female
  Weight: 55.78 kg

DRUGS (2)
  1. SULFACETAMIDE SODIUM. [Suspect]
     Active Substance: SULFACETAMIDE SODIUM
     Indication: ROSACEA
     Dosage: 1 APPLICATION, PRN
     Route: 061
     Dates: start: 20090323, end: 201812
  2. SULFACETAMIDE SODIUM. [Suspect]
     Active Substance: SULFACETAMIDE SODIUM
     Dosage: 1 APPLICATION, PRN
     Route: 061
     Dates: start: 201812, end: 20190109

REACTIONS (2)
  - Condition aggravated [Not Recovered/Not Resolved]
  - Off label use [Recovered/Resolved]

NARRATIVE: CASE EVENT DATE: 20090323
